FAERS Safety Report 6786214-4 (Version None)
Quarter: 2010Q2

REPORT INFORMATION
  Report Type: 
  Country: None (occurrence: None)
  Receive Date: 20100621
  Receipt Date: 20100621
  Transmission Date: 20101027
  Serious: No
  Sender: FDA-Public Use
  Company Number: None

PATIENT
  Age: 82 Year
  Sex: Male
  Weight: 68.9 kg

DRUGS (2)
  1. LEVAQUIN [Suspect]
     Indication: PROPHYLAXIS
     Dosage: 500 MG PREOP IV BOLUS
     Route: 040
     Dates: start: 20100617, end: 20100617
  2. LEVAQUIN [Suspect]
     Indication: SURGERY
     Dosage: 500 MG PREOP IV BOLUS
     Route: 040
     Dates: start: 20100617, end: 20100617

REACTIONS (2)
  - INFUSION SITE ERYTHEMA [None]
  - INFUSION SITE INFLAMMATION [None]
